FAERS Safety Report 18036058 (Version 1)
Quarter: 2020Q3

REPORT INFORMATION
  Report Type: Other
  Country: CO (occurrence: CO)
  Receive Date: 20200717
  Receipt Date: 20200717
  Transmission Date: 20201103
  Serious: Yes (Hospitalization)
  Sender: FDA-Public Use
  Company Number: CO-ROCHE-2641408

PATIENT
  Sex: Male
  Weight: 57 kg

DRUGS (1)
  1. GAZYVA [Suspect]
     Active Substance: OBINUTUZUMAB
     Indication: B-CELL LYMPHOMA
     Dosage: DOSE UNKNOWN
     Route: 042

REACTIONS (4)
  - Pneumonia [Recovering/Resolving]
  - Renal failure [Recovering/Resolving]
  - Pyrexia [Recovering/Resolving]
  - Immunodeficiency [Unknown]
